FAERS Safety Report 5370942-1 (Version None)
Quarter: 2007Q2

REPORT INFORMATION
  Report Type: 
  Country: None (occurrence: None)
  Receive Date: 20070626
  Receipt Date: 20070614
  Transmission Date: 20071010
  Serious: Yes (Other)
  Sender: FDA-Public Use
  Company Number: US-PFIZER INC-2007048951

PATIENT
  Sex: Male

DRUGS (4)
  1. NORVASC [Suspect]
     Indication: ILL-DEFINED DISORDER
     Dosage: TEXT:UNKNOWN
     Route: 065
     Dates: start: 20050101, end: 20070601
  2. AMLODIPINE [Suspect]
     Indication: ILL-DEFINED DISORDER
     Dosage: TEXT:UNKNOWN
     Route: 065
  3. DIGITEK [Concomitant]
  4. COREG [Concomitant]

REACTIONS (7)
  - CARDIAC DISORDER [None]
  - DISCOMFORT [None]
  - DRY MOUTH [None]
  - PELVIC PAIN [None]
  - POLLAKIURIA [None]
  - PROSTATIC DISORDER [None]
  - WRIST FRACTURE [None]
